FAERS Safety Report 9290734 (Version 1)
Quarter: 2013Q2

REPORT INFORMATION
  Report Type: Report from Study
  Country: BR (occurrence: BR)
  Receive Date: 20130515
  Receipt Date: 20130515
  Transmission Date: 20140414
  Serious: Yes (Other)
  Sender: FDA-Public Use
  Company Number: PHHY2013BR047704

PATIENT
  Sex: Male
  Weight: 70 kg

DRUGS (1)
  1. FORASEQ [Suspect]
     Indication: EMPHYSEMA
     Dosage: 1 DF, (OF EACH TREATMENT), DAILY

REACTIONS (5)
  - Dementia Alzheimer^s type [Not Recovered/Not Resolved]
  - Slow response to stimuli [Not Recovered/Not Resolved]
  - Eating disorder [Not Recovered/Not Resolved]
  - Nervousness [Not Recovered/Not Resolved]
  - Memory impairment [Not Recovered/Not Resolved]
